FAERS Safety Report 4966088-4 (Version None)
Quarter: 2006Q2

REPORT INFORMATION
  Report Type: 
  Country: None (occurrence: None)
  Receive Date: 20060403
  Receipt Date: 20060323
  Transmission Date: 20061013
  Serious: Yes (Hospitalization)
  Sender: FDA-Public Use
  Company Number: 008-C5013-06010639

PATIENT
  Age: 74 Year
  Sex: Female
  Weight: 56 kg

DRUGS (5)
  1. REVLIMID [Suspect]
     Indication: MULTIPLE MYELOMA
     Dosage: 15 MG, 21 DAYS 7 DAYS BREAK, ORAL
     Route: 048
     Dates: end: 20060131
  2. ASPIRIN [Concomitant]
  3. LOTRISONE (LOTRISONE) [Concomitant]
  4. MAXOLON [Concomitant]
  5. ZOMETA [Concomitant]

REACTIONS (20)
  - ANAEMIA [None]
  - BACK PAIN [None]
  - BLOOD ALBUMIN DECREASED [None]
  - BLOOD CALCIUM DECREASED [None]
  - BLOOD UREA DECREASED [None]
  - CONDITION AGGRAVATED [None]
  - CONSTIPATION [None]
  - DISEASE RECURRENCE [None]
  - HIATUS HERNIA [None]
  - HYPOKALAEMIA [None]
  - LABORATORY TEST ABNORMAL [None]
  - LIPASE INCREASED [None]
  - LYMPHOCYTE COUNT DECREASED [None]
  - MALAISE [None]
  - MEAN CELL VOLUME INCREASED [None]
  - MELAENA [None]
  - OESOPHAGITIS [None]
  - PLEURAL EFFUSION [None]
  - ROTATOR CUFF SYNDROME [None]
  - THORACIC VERTEBRAL FRACTURE [None]
